FAERS Safety Report 24175946 (Version 2)
Quarter: 2024Q3

REPORT INFORMATION
  Report Type: Report from Study
  Country: CH (occurrence: CH)
  Receive Date: 20240806
  Receipt Date: 20240813
  Transmission Date: 20241016
  Serious: Yes (Death)
  Sender: ABBVIE
  Company Number: CH-ABBVIE-5867149

PATIENT
  Age: 86 Year
  Sex: Male

DRUGS (2)
  1. CARBIDOPA\LEVODOPA [Suspect]
     Active Substance: CARBIDOPA\LEVODOPA
     Indication: Parkinson^s disease
     Dosage: MD: 8.0ML, CRD: 2.8 ML/H, ED: 2.0 ML, CRD: 1.0 ML/H. FREQUENCY TEXT: 24H THERAPY
     Route: 050
     Dates: start: 20230502
  2. CARBIDOPA\LEVODOPA [Suspect]
     Active Substance: CARBIDOPA\LEVODOPA
     Dosage: MD: 8.0ML, CRD: 2.8 ML/H, ED: 2.0 ML, CRD: 1.0 ML/H. FREQUENCY TEXT: 24H THERAPY
     Route: 050
     Dates: start: 20240419, end: 20240804

REACTIONS (1)
  - Death [Fatal]

NARRATIVE: CASE EVENT DATE: 20240804
